FAERS Safety Report 9280900 (Version 1)
Quarter: 2013Q2

REPORT INFORMATION
  Report Type: Other
  Country: ZA (occurrence: ZA)
  Receive Date: 20130509
  Receipt Date: 20130509
  Transmission Date: 20140414
  Serious: Yes (Other)
  Sender: FDA-Public Use
  Company Number: ZA-BRISTOL-MYERS SQUIBB COMPANY-18848176

PATIENT
  Age: 56 Year
  Sex: Female

DRUGS (3)
  1. TRIAMCINOLONE ACE INJ [Suspect]
     Dosage: INTRAVITREAL,4MG INJECTION.
     Dates: start: 201102
  2. AZATHIOPRINE [Suspect]
     Indication: UVEITIS
  3. PREDNISOLONE [Suspect]
     Indication: UVEITIS
     Route: 048
     Dates: start: 201108

REACTIONS (1)
  - Cytomegalovirus chorioretinitis [Recovered/Resolved]
